FAERS Safety Report 8466153-3 (Version None)
Quarter: 2012Q2

REPORT INFORMATION
  Report Type: 
  Country: None (occurrence: None)
  Receive Date: 20120626
  Receipt Date: 20120622
  Transmission Date: 20120825
  Serious: Yes (Other)
  Sender: FDA-Public Use
  Company Number: US-PFIZER INC-2010US-36169

PATIENT
  Sex: Female

DRUGS (5)
  1. ZOLOFT [Suspect]
     Dosage: UNK
     Route: 065
  2. CELEBREX [Suspect]
     Dosage: UNK
  3. CALAN [Suspect]
     Dosage: 240 MG, UNK
     Route: 065
  4. CALAN [Suspect]
     Dosage: 240 MG, UNK
     Route: 065
  5. LIPITOR [Suspect]
     Dosage: UNK
     Route: 065

REACTIONS (3)
  - KERATOMILEUSIS [None]
  - STENT PLACEMENT [None]
  - DRUG DOSE OMISSION [None]
